FAERS Safety Report 4380252-7 (Version None)
Quarter: 2004Q2

REPORT INFORMATION
  Report Type: 
  Country: None (occurrence: None)
  Receive Date: 20040614
  Receipt Date: 20040601
  Transmission Date: 20050107
  Serious: Yes (Hospitalization)
  Sender: FDA-Public Use
  Company Number: 2004037229

PATIENT
  Sex: Male

DRUGS (1)
  1. PHENYTOIN SODIUM [Suspect]
     Indication: CONVULSION
     Dosage: 300 MG (300 MG, 1 IN 1 D), ORAL
     Route: 048

REACTIONS (2)
  - CONDITION AGGRAVATED [None]
  - CONVULSION [None]
